FAERS Safety Report 5340057-7 (Version None)
Quarter: 2007Q2

REPORT INFORMATION
  Report Type: 
  Country: None (occurrence: None)
  Receive Date: 20070531
  Receipt Date: 20070522
  Transmission Date: 20071010
  Serious: Yes (Other)
  Sender: FDA-Public Use
  Company Number: JP-ASTRAZENECA-2007AP02014

PATIENT
  Age: 15935 Day
  Sex: Male
  Weight: 70 kg

DRUGS (7)
  1. CRESTOR [Suspect]
     Indication: HYPERLIPIDAEMIA
     Route: 048
     Dates: start: 20070122, end: 20070129
  2. TRICOR [Suspect]
     Indication: HYPERLIPIDAEMIA
     Route: 048
     Dates: start: 20070122, end: 20070129
  3. ZESTRIL [Concomitant]
     Route: 048
     Dates: start: 20050317
  4. NORVASC [Concomitant]
     Route: 048
     Dates: start: 20050317
  5. AMARYL [Concomitant]
     Route: 048
     Dates: start: 20050317
  6. LIPITOR [Concomitant]
     Dates: end: 20070122
  7. BEZATOL SR [Concomitant]
     Dates: end: 20070122

REACTIONS (1)
  - DRUG ERUPTION [None]
